FAERS Safety Report 5884635-5 (Version None)
Quarter: 2008Q3

REPORT INFORMATION
  Report Type: 
  Country: None (occurrence: None)
  Receive Date: 20080915
  Receipt Date: 20080915
  Transmission Date: 20090109
  Serious: No
  Sender: FDA-Public Use
  Company Number: None

PATIENT
  Age: 40 Year
  Sex: Female
  Weight: 58.9676 kg

DRUGS (1)
  1. LOESTRIN 24 FE [Suspect]
     Indication: PREMENSTRUAL SYNDROME
     Dosage: 1MG NORETHINDRONE ACETATE QD PO, EVERY DAY
     Route: 048
     Dates: start: 20080601, end: 20080901

REACTIONS (8)
  - AMENORRHOEA [None]
  - ANGER [None]
  - ANXIETY [None]
  - DEPRESSION [None]
  - HEADACHE [None]
  - IRRITABILITY [None]
  - NO THERAPEUTIC RESPONSE [None]
  - PHOTOPHOBIA [None]
